FAERS Safety Report 9351474 (Version 1)
Quarter: 2013Q2

REPORT INFORMATION
  Report Type: Spontaneous
  Country: US (occurrence: US)
  Receive Date: 20130617
  Receipt Date: 20130617
  Transmission Date: 20140414
  Serious: No
  Sender: FDA-Public Use
  Company Number: US-UPSHER-SMITH LABORATORIES, INC.-13001954

PATIENT
  Age: 78 Year
  Sex: Male

DRUGS (9)
  1. PACERONE (USL) [Suspect]
     Indication: ATRIAL FIBRILLATION
     Dosage: 200 MG, QD
     Route: 048
     Dates: start: 20130320, end: 20130406
  2. BENICAR [Concomitant]
     Dosage: UNK
  3. CELEBREX [Concomitant]
     Indication: ARTHRITIS
     Dosage: UNK
  4. METHOTREXATE [Concomitant]
     Dosage: UNK
  5. HUMIRA [Concomitant]
     Indication: ARTHRITIS
     Dosage: UNK
  6. ELIQUIS [Concomitant]
     Dosage: UNK
  7. VITAMIN C                          /00008001/ [Concomitant]
     Dosage: UNK
  8. CALCIUM 600 + D [Concomitant]
     Dosage: UNK
  9. FOLIC ACID [Concomitant]
     Dosage: UNK

REACTIONS (2)
  - Dyspnoea [Recovered/Resolved]
  - Pain in extremity [Recovered/Resolved]
